FAERS Safety Report 18812383 (Version 1)
Quarter: 2021Q1

REPORT INFORMATION
  Report Type: Spontaneous
  Country: US (occurrence: US)
  Receive Date: 20210130
  Receipt Date: 20210130
  Transmission Date: 20210419
  Serious: Yes (Other)
  Sender: FDA-Public Use
  Company Number: US-PURDUE-USA-2020-0155124

PATIENT
  Sex: Female

DRUGS (1)
  1. HYDROCODONE BITARTRATE AND ACETAMINOPHEN [Suspect]
     Active Substance: ACETAMINOPHEN\HYDROCODONE BITARTRATE
     Indication: PRODUCT USED FOR UNKNOWN INDICATION
     Dosage: UNK
     Route: 048

REACTIONS (10)
  - Headache [Unknown]
  - Cardiac disorder [Unknown]
  - Drug dependence [Unknown]
  - Back pain [Unknown]
  - Alopecia [Unknown]
  - Weight increased [Unknown]
  - Impaired work ability [Unknown]
  - Insomnia [Unknown]
  - Vertigo [Unknown]
  - Gait disturbance [Unknown]
